FAERS Safety Report 7272343-8 (Version None)
Quarter: 2011Q1

REPORT INFORMATION
  Report Type: 
  Country: None (occurrence: None)
  Receive Date: 20110203
  Receipt Date: 20110131
  Transmission Date: 20110831
  Serious: Yes (Death)
  Sender: FDA-Public Use
  Company Number: PHHO2010DE19879

PATIENT

DRUGS (10)
  1. MICTONORM [Concomitant]
  2. MOXONIDINE [Concomitant]
  3. BISOHEXAL [Concomitant]
  4. BERODUAL [Concomitant]
  5. TRAMADOL HCL [Concomitant]
  6. LORZAAR [Concomitant]
  7. SANDOCAL [Concomitant]
  8. CIPROFLOXACIN HCL [Concomitant]
  9. CLEXANE [Concomitant]
  10. ZOLEDRONATE [Suspect]
     Indication: METASTASES TO BONE
     Dosage: UNK

REACTIONS (1)
  - ACUTE MYOCARDIAL INFARCTION [None]
